FAERS Safety Report 9731779 (Version 2)
Quarter: 2013Q4

REPORT INFORMATION
  Report Type: Report from Study
  Country: US (occurrence: US)
  Receive Date: 20131205
  Receipt Date: 20131220
  Transmission Date: 20140711
  Serious: Yes (Other)
  Sender: FDA-Public Use
  Company Number: US-ROCHE-1312804

PATIENT
  Age: 62 Year
  Sex: Female
  Weight: 111.68 kg

DRUGS (3)
  1. ACTEMRA [Suspect]
     Indication: RHEUMATOID ARTHRITIS
     Route: 042
     Dates: start: 20130411, end: 20130815
  2. ACTEMRA [Suspect]
     Dosage: TOTAL OF 4 INFUSIONS
     Route: 042
     Dates: start: 201310, end: 201310
  3. LASIX [Concomitant]
     Indication: HYPERTENSION

REACTIONS (3)
  - Dyspnoea [Recovered/Resolved]
  - Muscle spasms [Recovered/Resolved]
  - Back pain [Unknown]
